FAERS Safety Report 7716827-4 (Version None)
Quarter: 2011Q3

REPORT INFORMATION
  Report Type: 
  Country: None (occurrence: None)
  Receive Date: 20110829
  Receipt Date: 20110824
  Transmission Date: 20111222
  Serious: Yes (Hospitalization)
  Sender: FDA-Public Use
  Company Number: JP-ASTRAZENECA-2011SE51176

PATIENT
  Sex: Female

DRUGS (2)
  1. CANDESARTAN CILEXETIL [Suspect]
     Indication: HEART RATE INCREASED
     Route: 048
  2. CANDESARTAN CILEXETIL/HYDROCHLOROTHIAZIDE [Suspect]
     Indication: HEART RATE INCREASED
     Dosage: 16/12.5 MG
     Route: 048

REACTIONS (1)
  - PNEUMONIA [None]
